FAERS Safety Report 5334724-9 (Version None)
Quarter: 2007Q2

REPORT INFORMATION
  Report Type: 
  Country: None (occurrence: None)
  Receive Date: 20070525
  Receipt Date: 20070518
  Transmission Date: 20071010
  Serious: Yes (Hospitalization)
  Sender: FDA-Public Use
  Company Number: ES-JNJFOC-20061202716

PATIENT
  Sex: Male

DRUGS (11)
  1. TMC114 [Suspect]
     Route: 048
  2. TMC114 [Suspect]
     Indication: HIV INFECTION
     Route: 048
  3. RITONAVIR [Suspect]
     Route: 048
  4. RITONAVIR [Suspect]
     Indication: HIV INFECTION
     Route: 048
  5. COTRIMOXAZOLE [Suspect]
     Indication: PROPHYLAXIS
  6. TRIZIVIR [Suspect]
     Indication: HIV INFECTION
     Route: 048
  7. FUZEON [Concomitant]
     Route: 058
  8. FUZEON [Concomitant]
     Indication: HIV INFECTION
     Route: 058
  9. VIREAD [Concomitant]
     Indication: HIV INFECTION
     Route: 048
  10. TRUVADA [Concomitant]
     Indication: HIV INFECTION
     Route: 048
  11. NAPROXEN [Concomitant]
     Route: 065

REACTIONS (3)
  - HEADACHE [None]
  - HYPERSENSITIVITY [None]
  - PYREXIA [None]
